FAERS Safety Report 9051036 (Version 2)
Quarter: 2013Q1

REPORT INFORMATION
  Report Type: Spontaneous
  Country: JP (occurrence: JP)
  Receive Date: 20130117
  Receipt Date: 20130117
  Transmission Date: 20140127
  Serious: Yes (Hospitalization)
  Sender: FDA-Public Use
  Company Number: JP-BRISTOL-MYERS SQUIBB COMPANY-17238163

PATIENT
  Age: 30 Year
  Sex: Female

DRUGS (1)
  1. ABILIFY TABS [Suspect]
     Indication: SCHIZOPHRENIA
     Dosage: DOSE DECREASED ON 13JUN12: 3MG/DAY
     Route: 048
     Dates: end: 201212

REACTIONS (3)
  - Oligohydramnios [Not Recovered/Not Resolved]
  - Pregnancy [Recovered/Resolved]
  - Live birth [Unknown]
